FAERS Safety Report 8175785-1 (Version None)
Quarter: 2012Q1

REPORT INFORMATION
  Report Type: 
  Country: None (occurrence: None)
  Receive Date: 20120228
  Receipt Date: 20120215
  Transmission Date: 20120608
  Serious: Yes (Other)
  Sender: FDA-Public Use
  Company Number: 2010MA002412

PATIENT
  Sex: Female
  Weight: 90.7194 kg

DRUGS (34)
  1. RHINOCORT [Concomitant]
  2. LEVAQUIN [Concomitant]
  3. COUMADIN [Concomitant]
  4. MIRAPEX [Concomitant]
  5. FLUTICASONE PROPIONATE [Concomitant]
  6. CELEXA [Concomitant]
  7. ASCORBIC ACID [Concomitant]
  8. FOLIC ACID [Concomitant]
  9. VITAMIN B COMPLEX CAP [Concomitant]
  10. PREDNISONE TAB [Concomitant]
  11. METHOCARBAMOL [Concomitant]
  12. DIAZEPAM [Concomitant]
  13. XANAX [Concomitant]
  14. CARBIDOPA AND LEVODOPA [Concomitant]
  15. MAGNESIUM [Concomitant]
  16. CALCIUM [Concomitant]
  17. TYLENOL-500 [Concomitant]
  18. GLUCOSAMINE [Concomitant]
  19. PERCOSET [Concomitant]
  20. XANAX ER [Concomitant]
  21. CITALOPRAM [Concomitant]
  22. HYDROCODONE BITARTRATE AND ACETAMINOPHEN [Concomitant]
  23. PRILOSEC [Concomitant]
  24. CALCIUM CARBONATE [Concomitant]
  25. METOCLOPRAMIDE HYDROCHLORIDE [Suspect]
     Indication: GASTROOESOPHAGEAL REFLUX DISEASE
     Dosage: 10 MG; UNK; PO
     Route: 048
     Dates: start: 20080417, end: 20081001
  26. METOCLOPRAMIDE HYDROCHLORIDE [Suspect]
     Indication: OESOPHAGEAL DISORDER
     Dosage: 10 MG; UNK; PO
     Route: 048
     Dates: start: 20080417, end: 20081001
  27. METOCLOPRAMIDE HYDROCHLORIDE [Suspect]
     Indication: OESOPHAGEAL HYPOMOTILITY
     Dosage: 10 MG; UNK; PO
     Route: 048
     Dates: start: 20080417, end: 20081001
  28. ESTROPIPATE [Concomitant]
  29. OXYCODONE HCL AND ACETAMINOPHEN [Concomitant]
  30. PHENYLEPHRINE HCL [Concomitant]
  31. LORATADINE [Concomitant]
  32. LYSINE [Concomitant]
  33. CELEBREX [Concomitant]
  34. REQUIP [Concomitant]

REACTIONS (20)
  - UPPER RESPIRATORY TRACT INFECTION [None]
  - DEPRESSION [None]
  - ARTHRALGIA [None]
  - RESTLESSNESS [None]
  - NAUSEA [None]
  - PAIN [None]
  - NERVOUSNESS [None]
  - TARDIVE DYSKINESIA [None]
  - ECONOMIC PROBLEM [None]
  - EMOTIONAL DISORDER [None]
  - OESOPHAGEAL DISORDER [None]
  - HIATUS HERNIA [None]
  - COGWHEEL RIGIDITY [None]
  - ABNORMAL SLEEP-RELATED EVENT [None]
  - VISION BLURRED [None]
  - HYPERHIDROSIS [None]
  - GRIMACING [None]
  - EXTRAPYRAMIDAL DISORDER [None]
  - ORGANISING PNEUMONIA [None]
  - ANXIETY [None]
